FAERS Safety Report 21452846 (Version 1)
Quarter: 2022Q4

REPORT INFORMATION
  Report Type: Spontaneous
  Country: JP (occurrence: JP)
  Receive Date: 20221013
  Receipt Date: 20221013
  Transmission Date: 20230113
  Serious: Yes (Hospitalization)
  Sender: FDA-Public Use
  Company Number: JP-CHUGAI-2022034295

PATIENT
  Age: 65 Year
  Sex: Female
  Weight: 40.7 kg

DRUGS (14)
  1. AVASTIN [Suspect]
     Active Substance: BEVACIZUMAB
     Indication: Ovarian cancer
     Dosage: 640 MILLIGRAM, ONCE/3WEEKS
     Route: 041
     Dates: start: 20220727, end: 20220817
  2. CARBOPLATIN [Suspect]
     Active Substance: CARBOPLATIN
     Indication: Ovarian cancer
     Route: 041
     Dates: start: 20220705, end: 20220817
  3. PACLITAXEL [Suspect]
     Active Substance: PACLITAXEL
     Indication: Ovarian cancer
     Route: 041
     Dates: start: 20220705
  4. PACLITAXEL [Suspect]
     Active Substance: PACLITAXEL
     Dosage: UNK UNK, SINGLE
     Route: 041
     Dates: start: 20220817, end: 20220817
  5. PALONOSETRON [PALONOSETRON HYDROCHLORIDE] [Concomitant]
     Dosage: UNK MILLIGRAM
     Route: 041
  6. DEXAMETHASONE SODIUM PHOSPHATE [Concomitant]
     Active Substance: DEXAMETHASONE SODIUM PHOSPHATE
     Dosage: UNK
     Route: 065
  7. APREPITANT [Concomitant]
     Active Substance: APREPITANT
     Dosage: UNK
     Route: 048
  8. FAMOTIDINE [Concomitant]
     Active Substance: FAMOTIDINE
     Dosage: UNK
     Route: 042
  9. POLARAMINE [Concomitant]
     Active Substance: DEXCHLORPHENIRAMINE MALEATE
     Dosage: UNK
     Route: 065
  10. SITAGLIPTIN [Concomitant]
     Active Substance: SITAGLIPTIN
     Dosage: UNK
     Route: 048
  11. ATORVASTATIN OD [Concomitant]
     Dosage: UNK
     Route: 048
  12. FUROSEMIDE [Concomitant]
     Active Substance: FUROSEMIDE
     Dosage: UNK
     Route: 048
  13. MAGNESIUM OXIDE [Concomitant]
     Active Substance: MAGNESIUM OXIDE
     Dosage: UNK
     Route: 048
  14. SODIUM PICOSULFATE [Concomitant]
     Active Substance: SODIUM PICOSULFATE
     Dosage: UNK
     Route: 048

REACTIONS (4)
  - Duodenal perforation [Recovering/Resolving]
  - Procedural pain [Unknown]
  - Constipation [Unknown]
  - Nausea [Unknown]

NARRATIVE: CASE EVENT DATE: 20220824
